FAERS Safety Report 12140196 (Version 1)
Quarter: 2016Q1

REPORT INFORMATION
  Report Type: Spontaneous
  Country: US (occurrence: None)
  Receive Date: 20160302
  Receipt Date: 20160302
  Transmission Date: 20160526
  Serious: Yes (Hospitalization)
  Sender: FDA-Public Use
  Company Number: None

PATIENT
  Age: 63 Year
  Sex: Male
  Weight: 56.25 kg

DRUGS (12)
  1. ASPIRIN. [Concomitant]
     Active Substance: ASPIRIN
  2. DRONABINOL (MARINOL) [Concomitant]
  3. PEMBROLIZUMAB 100MG/4ML MERCK [Suspect]
     Active Substance: PEMBROLIZUMAB
     Indication: MESOTHELIOMA
     Route: 042
     Dates: start: 20150826, end: 20160217
  4. NEXIUM [Concomitant]
     Active Substance: ESOMEPRAZOLE MAGNESIUM
  5. INSULIN ASPART (NOVOLOG) [Concomitant]
  6. ALBUTEROL-IPRATROPIUM (DUONEB) [Concomitant]
  7. LOVENOX [Concomitant]
     Active Substance: ENOXAPARIN SODIUM
  8. REMERON [Concomitant]
     Active Substance: MIRTAZAPINE
  9. SYMBICORT [Concomitant]
     Active Substance: BUDESONIDE\FORMOTEROL FUMARATE DIHYDRATE
  10. HEXAVITAMIN [Concomitant]
  11. ACETAMINOPHEN-CODEINE (TYLENOL #3) [Concomitant]
  12. ALBUTEROL. [Concomitant]
     Active Substance: ALBUTEROL

REACTIONS (1)
  - Alveolitis allergic [None]

NARRATIVE: CASE EVENT DATE: 20160226
